FAERS Safety Report 6243766-0 (Version None)
Quarter: 2009Q2

REPORT INFORMATION
  Report Type: 
  Country: None (occurrence: None)
  Receive Date: 20090624
  Receipt Date: 20090617
  Transmission Date: 20091009
  Serious: Yes (Hospitalization)
  Sender: FDA-Public Use
  Company Number: JP-ABBOTT-06P-087-0351194-00

PATIENT
  Sex: Male

DRUGS (10)
  1. KALETRA [Suspect]
     Indication: HIV INFECTION
     Route: 048
     Dates: start: 20030523, end: 20061205
  2. KALETRA [Suspect]
     Dosage: TABLET
     Route: 048
     Dates: start: 20061206
  3. KALETRA [Suspect]
     Indication: HIV INFECTION
     Route: 048
     Dates: start: 20061206
  4. LAMIVUDINE/ABACAVIR [Suspect]
     Indication: HIV INFECTION
     Route: 048
     Dates: start: 20050511
  5. LAMIVUDINE [Suspect]
     Indication: HIV INFECTION
     Route: 048
     Dates: start: 20030523, end: 20050510
  6. ABACAVIR [Suspect]
     Indication: HIV INFECTION
     Route: 048
     Dates: start: 20031205, end: 20050510
  7. SULFAMATHOXAZOLE/TRIMETHOPRIME [Concomitant]
     Indication: ANTIFUNGAL PROPHYLAXIS
     Route: 048
     Dates: start: 20030401, end: 20050511
  8. MISOPROSTOL [Concomitant]
     Indication: PROPHYLAXIS AGAINST GASTROINTESTINAL ULCER
     Route: 048
     Dates: start: 20050607, end: 20050911
  9. STAVUDINE [Concomitant]
     Indication: HIV INFECTION
     Route: 048
     Dates: start: 20030523, end: 20031204
  10. LOPERAMIDE HYDROCHLORIDE [Concomitant]
     Indication: DIARRHOEA
     Route: 048
     Dates: start: 20030702

REACTIONS (5)
  - BLOOD ALKALINE PHOSPHATASE INCREASED [None]
  - EPIDIDYMITIS [None]
  - HYPERTHYROIDISM [None]
  - HYPOAESTHESIA [None]
  - OSTEONECROSIS [None]
